FAERS Safety Report 10345298 (Version 2)
Quarter: 2014Q3

REPORT INFORMATION
  Report Type: Spontaneous
  Country: US (occurrence: US)
  Receive Date: 20140728
  Receipt Date: 20140821
  Transmission Date: 20150326
  Serious: No
  Sender: FDA-Public Use
  Company Number: US-PFIZER INC-2014205463

PATIENT
  Age: 62 Year
  Sex: Male

DRUGS (2)
  1. INLYTA [Suspect]
     Active Substance: AXITINIB
     Indication: RENAL CANCER
     Dosage: 5 MG, 2X/DAY (ONE TABLET EVERY 12 HOURS)
     Route: 048
     Dates: start: 20140419
  2. INLYTA [Suspect]
     Active Substance: AXITINIB
     Dosage: 1 MG, 2X/DAY (1 TABLET EVERY 12 HOURS)
     Dates: start: 20140723

REACTIONS (4)
  - Stomatitis [Unknown]
  - Heart rate increased [Unknown]
  - Hypertension [Unknown]
  - Headache [Unknown]
